FAERS Safety Report 11271695 (Version 2)
Quarter: 2015Q3

REPORT INFORMATION
  Report Type: Spontaneous
  Country: GB (occurrence: GB)
  Receive Date: 20150715
  Receipt Date: 20150730
  Transmission Date: 20151125
  Serious: Yes (Hospitalization, Other)
  Sender: FDA-Public Use
  Company Number: GB-JNJFOC-20150707170

PATIENT
  Age: 3 Year
  Sex: Female

DRUGS (2)
  1. CALPOL [Suspect]
     Active Substance: ACETAMINOPHEN
     Route: 048
  2. CALPOL [Suspect]
     Active Substance: ACETAMINOPHEN
     Indication: ACCIDENTAL EXPOSURE TO PRODUCT
     Route: 048
     Dates: start: 20150707

REACTIONS (3)
  - Product quality issue [Recovered/Resolved]
  - Accidental exposure to product by child [Recovered/Resolved]
  - Overdose [Recovered/Resolved]

NARRATIVE: CASE EVENT DATE: 20150707
